FAERS Safety Report 6586023-5 (Version None)
Quarter: 2010Q1

REPORT INFORMATION
  Report Type: 
  Country: None (occurrence: None)
  Receive Date: 20100216
  Receipt Date: 20100216
  Transmission Date: 20100710
  Serious: Yes (Life-Threatening, Hospitalization)
  Sender: FDA-Public Use
  Company Number: None

PATIENT
  Age: 65 Year
  Sex: Male
  Weight: 155 kg

DRUGS (1)
  1. ENOXAPARIN SODIUM [Suspect]
     Indication: ATRIAL FIBRILLATION
     Dosage: 150 MG BID SQ
     Route: 058
     Dates: start: 20091228, end: 20100102

REACTIONS (7)
  - ABDOMINAL COMPARTMENT SYNDROME [None]
  - GASTRIC HAEMORRHAGE [None]
  - HYPOTENSION [None]
  - INTERNATIONAL NORMALISED RATIO ABNORMAL [None]
  - RENAL FAILURE ACUTE [None]
  - RETROPERITONEAL HAEMORRHAGE [None]
  - TACHYCARDIA [None]
